FAERS Safety Report 4477263-X (Version None)
Quarter: 2004Q4

REPORT INFORMATION
  Report Type: 
  Country: None (occurrence: None)
  Receive Date: 20041018
  Receipt Date: 20031015
  Transmission Date: 20050328
  Serious: No
  Sender: FDA-Public Use
  Company Number: US-GLAXOSMITHKLINE-A0430451A

PATIENT
  Age: 2 Year
  Sex: Male

DRUGS (1)
  1. CEFUROXIME AXETIL [Suspect]
     Indication: SKIN INFECTION
     Route: 048

REACTIONS (2)
  - RETCHING [None]
  - VOMITING [None]
